FAERS Safety Report 4851446-9 (Version None)
Quarter: 2005Q4

REPORT INFORMATION
  Report Type: 
  Country: None (occurrence: None)
  Receive Date: 20051212
  Receipt Date: 20051009
  Transmission Date: 20060501
  Serious: Yes (Other)
  Sender: FDA-Public Use
  Company Number: PHEH2005US11315

PATIENT
  Age: 59 Year
  Sex: Female

DRUGS (2)
  1. ZOMETA [Suspect]
     Indication: BREAST CANCER METASTATIC
  2. CHEMOTHERAPEUTICS,OTHER [Concomitant]
     Indication: BREAST CANCER

REACTIONS (2)
  - FALL [None]
  - FRACTURE [None]
